FAERS Safety Report 24940185 (Version 1)
Quarter: 2025Q1

REPORT INFORMATION
  Report Type: Spontaneous
  Country: IT (occurrence: IT)
  Receive Date: 20250207
  Receipt Date: 20250207
  Transmission Date: 20250408
  Serious: Yes (Death, Other)
  Sender: MSN LABORATORIES PRIVATE LIMITED
  Company Number: IT-MSNLABS-2025MSNLIT00278

PATIENT

DRUGS (2)
  1. CHLORPROMAZINE HYDROCHLORIDE [Suspect]
     Active Substance: CHLORPROMAZINE HYDROCHLORIDE
     Indication: Schizoaffective disorder
     Dosage: CHLORPROMAZINE 50 MG/DIE
     Route: 065
  2. PERICIAZINE [Suspect]
     Active Substance: PERICIAZINE
     Indication: Schizoaffective disorder
     Dosage: PERICIAZINE 30 MG/DIE
     Route: 065

REACTIONS (2)
  - Choking [Fatal]
  - Dysphagia [Fatal]
